FAERS Safety Report 5168382-3 (Version None)
Quarter: 2006Q4

REPORT INFORMATION
  Report Type: 
  Country: None (occurrence: None)
  Receive Date: 20061201
  Receipt Date: 20061115
  Transmission Date: 20070319
  Serious: Yes (Other)
  Sender: FDA-Public Use
  Company Number: 150151ISR

PATIENT
  Age: 72 Year
  Sex: Male

DRUGS (2)
  1. CIPROFLOXACIN [Suspect]
     Indication: ENTEROBACTER INFECTION
  2. BETA-LACTAM ANTIBACTERIALS,  PENICILLINS [Suspect]
     Indication: ENTEROBACTER INFECTION

REACTIONS (1)
  - FACTOR V INHIBITION [None]
